FAERS Safety Report 8547676-5 (Version None)
Quarter: 2012Q3

REPORT INFORMATION
  Report Type: 
  Country: None (occurrence: None)
  Receive Date: 20120727
  Receipt Date: 20111116
  Transmission Date: 20120928
  Serious: Yes (Hospitalization)
  Sender: FDA-Public Use
  Company Number: US-ASTRAZENECA-2011SE70066

PATIENT
  Sex: Male

DRUGS (6)
  1. WELLBUTRIN [Concomitant]
     Route: 048
  2. ZOLOFT [Concomitant]
     Route: 048
  3. TRAZODONE HCL [Concomitant]
     Route: 048
  4. SEROQUEL [Suspect]
     Route: 048
  5. DEPAKOTE [Concomitant]
  6. DEPAKOTE [Concomitant]

REACTIONS (5)
  - DEPRESSIVE SYMPTOM [None]
  - SUICIDAL IDEATION [None]
  - DEPRESSED MOOD [None]
  - INAPPROPRIATE SCHEDULE OF DRUG ADMINISTRATION [None]
  - WEIGHT DECREASED [None]
